FAERS Safety Report 14056510 (Version 1)
Quarter: 2017Q4

REPORT INFORMATION
  Report Type: Spontaneous
  Country: BR (occurrence: BR)
  Receive Date: 20171006
  Receipt Date: 20171006
  Transmission Date: 20180321
  Serious: Yes (Hospitalization, Other)
  Sender: FDA-Public Use
  Company Number: BR-TORRENT-00004176

PATIENT
  Age: 94 Year
  Sex: Female

DRUGS (6)
  1. ATORVASTATIN [Concomitant]
     Active Substance: ATORVASTATIN
  2. ELIQUIS [Concomitant]
     Active Substance: APIXABAN
  3. OLMECOR [Suspect]
     Active Substance: OLMESARTAN MEDOXOMIL
  4. ROSUCOR [Suspect]
     Active Substance: ROSUVASTATIN CALCIUM
  5. CILOSTAZOL. [Concomitant]
     Active Substance: CILOSTAZOL
  6. AAS [Concomitant]
     Active Substance: ASPIRIN

REACTIONS (4)
  - Drug ineffective [Unknown]
  - Haemothorax [Not Recovered/Not Resolved]
  - Off label use [Unknown]
  - Product quality issue [Unknown]

NARRATIVE: CASE EVENT DATE: 201706
